FAERS Safety Report 19227117 (Version 1)
Quarter: 2021Q2

REPORT INFORMATION
  Report Type: Other
  Country: CA (occurrence: CA)
  Receive Date: 20210507
  Receipt Date: 20210507
  Transmission Date: 20210717
  Serious: Yes (Other)
  Sender: FDA-Public Use
  Company Number: CA-APOTEX-2021AP010763

PATIENT

DRUGS (8)
  1. MELPHALAN. [Suspect]
     Active Substance: MELPHALAN
     Indication: HODGKIN^S DISEASE
  2. CYTARABINE. [Suspect]
     Active Substance: CYTARABINE
     Indication: HODGKIN^S DISEASE REFRACTORY
     Dosage: UNK
     Route: 065
  3. ETOPOSIDE. [Suspect]
     Active Substance: ETOPOSIDE
     Indication: HODGKIN^S DISEASE REFRACTORY
     Dosage: UNK
     Route: 065
  4. MELPHALAN. [Suspect]
     Active Substance: MELPHALAN
     Indication: HODGKIN^S DISEASE REFRACTORY
     Dosage: UNK
     Route: 065
  5. CYTARABINE. [Suspect]
     Active Substance: CYTARABINE
     Indication: HODGKIN^S DISEASE
  6. CARMUSTINE. [Suspect]
     Active Substance: CARMUSTINE
     Indication: HODGKIN^S DISEASE
  7. CARMUSTINE. [Suspect]
     Active Substance: CARMUSTINE
     Indication: HODGKIN^S DISEASE REFRACTORY
     Dosage: UNK
     Route: 065
  8. ETOPOSIDE. [Suspect]
     Active Substance: ETOPOSIDE
     Indication: HODGKIN^S DISEASE

REACTIONS (1)
  - Staphylococcal infection [Unknown]
